FAERS Safety Report 7486342-4 (Version None)
Quarter: 2011Q2

REPORT INFORMATION
  Report Type: 
  Country: None (occurrence: None)
  Receive Date: 20110517
  Receipt Date: 20110506
  Transmission Date: 20111010
  Serious: Yes (Congenital Anomaly, Other)
  Sender: FDA-Public Use
  Company Number: PHHY2011US38194

PATIENT
  Age: 2 Month
  Sex: Female

DRUGS (2)
  1. PROSTAGLANDINS [Concomitant]
     Dosage: UNK UKN, UNK
  2. METHOTREXATE [Suspect]
     Indication: RASH ERYTHEMATOUS
     Dosage: UNK UKN, UNK
     Route: 064

REACTIONS (14)
  - EXTERNAL AUDITORY CANAL ATRESIA [None]
  - HYPOXIA [None]
  - MICROGNATHIA [None]
  - CONGENITAL RENAL DISORDER [None]
  - FOETAL METHOTREXATE SYNDROME [None]
  - CARDIOVASCULAR DISORDER [None]
  - PULMONARY ARTERY ATRESIA [None]
  - OXYGEN SATURATION DECREASED [None]
  - VENTRICULAR SEPTAL DEFECT [None]
  - PYELOCALIECTASIS [None]
  - INTESTINAL MALROTATION [None]
  - CONGENITAL ARTERIAL MALFORMATION [None]
  - RESPIRATORY SYNCYTIAL VIRUS INFECTION [None]
  - DRUG EXPOSURE DURING PREGNANCY [None]
